FAERS Safety Report 18916323 (Version 1)
Quarter: 2021Q1

REPORT INFORMATION
  Report Type: Spontaneous
  Country: JP (occurrence: JP)
  Receive Date: 20210219
  Receipt Date: 20210219
  Transmission Date: 20210420
  Serious: Yes (Other)
  Sender: FDA-Public Use
  Company Number: JP-PFIZER INC-2021149192

PATIENT
  Sex: Female

DRUGS (1)
  1. JZOLOFT 25MG [Suspect]
     Active Substance: SERTRALINE HYDROCHLORIDE
     Dosage: 25 MG, 1X/DAY (1 TABLET AFTER DINNER)
     Route: 048
     Dates: start: 202101

REACTIONS (3)
  - Depression [Unknown]
  - Delirium [Unknown]
  - Mental disorder [Unknown]
